FAERS Safety Report 14532047 (Version 4)
Quarter: 2019Q1

REPORT INFORMATION
  Report Type: Spontaneous
  Country: IT (occurrence: IT)
  Receive Date: 20180214
  Receipt Date: 20190125
  Transmission Date: 20190417
  Serious: Yes (Life-Threatening, Hospitalization, Other)
  Sender: FDA-Public Use
  Company Number: IT-MYLANLABS-2018M1009811

PATIENT
  Age: 65 Year
  Sex: Male

DRUGS (10)
  1. METFORMIN [Suspect]
     Active Substance: METFORMIN HYDROCHLORIDE
     Indication: TYPE 2 DIABETES MELLITUS
  2. ACARBOSE. [Concomitant]
     Active Substance: ACARBOSE
     Indication: TYPE 2 DIABETES MELLITUS
     Dosage: UNK
     Route: 065
  3. METFORMIN [Suspect]
     Active Substance: METFORMIN HYDROCHLORIDE
     Indication: TYPE 2 DIABETES MELLITUS
     Dosage: UNK
     Route: 065
  4. GLIBENCLAMIDE [Concomitant]
     Active Substance: GLYBURIDE
     Indication: TYPE 2 DIABETES MELLITUS
     Dosage: UNK
     Route: 065
  5. DOPAMINE [Concomitant]
     Active Substance: DOPAMINE\DOPAMINE HYDROCHLORIDE
     Indication: HYPOTENSION
     Dosage: UNK
  6. GLIBENCLAMIDE [Concomitant]
     Active Substance: GLYBURIDE
     Indication: TYPE 2 DIABETES MELLITUS
  7. PIPERACILLIN. [Concomitant]
     Active Substance: PIPERACILLIN SODIUM
     Indication: URINARY TRACT INFECTION
     Dosage: UNK
  8. GLIBENCLAMIDE [Concomitant]
     Active Substance: GLYBURIDE
     Indication: TYPE 2 DIABETES MELLITUS
  9. METFORMIN [Suspect]
     Active Substance: METFORMIN HYDROCHLORIDE
     Indication: TYPE 2 DIABETES MELLITUS
  10. TAZOBACTAM [Concomitant]
     Active Substance: TAZOBACTAM
     Indication: URINARY TRACT INFECTION
     Dosage: UNK

REACTIONS (21)
  - Mental status changes [Recovering/Resolving]
  - Pancreatitis chronic [Unknown]
  - Anuria [Recovering/Resolving]
  - Chronic kidney disease [Recovering/Resolving]
  - Lactic acidosis [Recovering/Resolving]
  - Metabolic acidosis [Unknown]
  - Septic shock [Recovering/Resolving]
  - Nephrolithiasis [Unknown]
  - Hyperoxaluria [Unknown]
  - Blood creatinine increased [Recovering/Resolving]
  - Calcinosis [Recovering/Resolving]
  - Renal tubular necrosis [Recovering/Resolving]
  - PO2 increased [Unknown]
  - Hypotension [Recovering/Resolving]
  - Dysuria [Recovering/Resolving]
  - Faecal elastase concentration decreased [Unknown]
  - Sepsis [Unknown]
  - Respiratory failure [Recovering/Resolving]
  - Acute kidney injury [Recovering/Resolving]
  - PCO2 decreased [Unknown]
  - Blood pH decreased [Unknown]
